FAERS Safety Report 13031556 (Version 2)
Quarter: 2016Q4

REPORT INFORMATION
  Report Type: Spontaneous
  Country: US (occurrence: US)
  Receive Date: 20161215
  Receipt Date: 20161227
  Transmission Date: 20170207
  Serious: Yes (Life-Threatening, Hospitalization, Disabling, Other)
  Sender: FDA-Public Use
  Company Number: US-GILEAD-2016-0248308

PATIENT
  Age: 74 Year
  Sex: Male
  Weight: 63.39 kg

DRUGS (4)
  1. DONEPEZIL. [Concomitant]
     Active Substance: DONEPEZIL
  2. PAROXETINE. [Concomitant]
     Active Substance: PAROXETINE
  3. BUPROPION. [Concomitant]
     Active Substance: BUPROPION
  4. HARVONI [Suspect]
     Active Substance: LEDIPASVIR\SOFOSBUVIR
     Indication: HEPATITIS C
     Route: 065

REACTIONS (1)
  - Lymphoma [Not Recovered/Not Resolved]
